FAERS Safety Report 9742589 (Version 2)
Quarter: 2015Q3

REPORT INFORMATION
  Report Type: Spontaneous
  Country: US (occurrence: US)
  Receive Date: 20131210
  Receipt Date: 20150804
  Transmission Date: 20151125
  Serious: No
  Sender: FDA-Public Use
  Company Number: US-GILEAD-2009-0024491

PATIENT
  Age: 56 Year
  Sex: Female
  Weight: 65.32 kg

DRUGS (17)
  1. SERTRALINE HCL [Concomitant]
     Active Substance: SERTRALINE HYDROCHLORIDE
  2. DOCUSATE SODIUM. [Concomitant]
     Active Substance: DOCUSATE SODIUM
  3. AMMONIUM LACTATE 12% CREAM [Concomitant]
  4. POLYETHYLENE GLYCOL 1000 [Concomitant]
     Active Substance: POLYETHYLENE GLYCOL 1000
  5. CYCLOBENZAPRINE [Concomitant]
     Active Substance: CYCLOBENZAPRINE
  6. BISACODYL. [Concomitant]
     Active Substance: BISACODYL
  7. HYDROCODONE-APAP [Concomitant]
     Active Substance: ACETAMINOPHEN\HYDROCODONE
  8. VITAMIN B12 [Concomitant]
     Active Substance: CYANOCOBALAMIN
  9. PSEUDOEPHEDRINE [Concomitant]
     Active Substance: PSEUDOEPHEDRINE
  10. FOLIC ACID. [Concomitant]
     Active Substance: FOLIC ACID
  11. OXYGEN. [Concomitant]
     Active Substance: OXYGEN
  12. CLONAZEPAM. [Concomitant]
     Active Substance: CLONAZEPAM
  13. FENOFIBRATE. [Concomitant]
     Active Substance: FENOFIBRATE
  14. OMEPRAZOLE. [Concomitant]
     Active Substance: OMEPRAZOLE
  15. LETAIRIS [Suspect]
     Active Substance: AMBRISENTAN
     Indication: PULMONARY ARTERIAL HYPERTENSION
     Route: 048
     Dates: start: 20090721
  16. ALBUTEROL. [Concomitant]
     Active Substance: ALBUTEROL
  17. GLYBURIDE. [Concomitant]
     Active Substance: GLYBURIDE

REACTIONS (2)
  - Fluid retention [Unknown]
  - Dyspnoea [Unknown]
